FAERS Safety Report 7967343-6 (Version None)
Quarter: 2011Q4

REPORT INFORMATION
  Report Type: 
  Country: None (occurrence: None)
  Receive Date: 20111209
  Receipt Date: 20111129
  Transmission Date: 20120403
  Serious: Yes (Life-Threatening, Other)
  Sender: FDA-Public Use
  Company Number: RU-JNJFOC-20111200384

PATIENT
  Sex: Female
  Weight: 89 kg

DRUGS (5)
  1. INVANZ [Concomitant]
     Indication: INFECTION PROPHYLAXIS
     Route: 030
     Dates: start: 20111114, end: 20111118
  2. KETOPROFEN [Suspect]
     Indication: ANAESTHESIA
     Route: 030
  3. ANALGIN [Concomitant]
     Indication: ANAESTHESIA
     Route: 030
     Dates: start: 20111114, end: 20111118
  4. DIMEDROL [Concomitant]
     Indication: ANAESTHESIA
     Route: 030
     Dates: start: 20111114, end: 20111118
  5. XARELTO [Suspect]
     Indication: THROMBOSIS PROPHYLAXIS
     Route: 048
     Dates: start: 20111113, end: 20111125

REACTIONS (1)
  - THROMBOPHLEBITIS SUPERFICIAL [None]
